FAERS Safety Report 6128731-6 (Version None)
Quarter: 2009Q1

REPORT INFORMATION
  Report Type: 
  Country: None (occurrence: None)
  Receive Date: 20090319
  Receipt Date: 20090115
  Transmission Date: 20090719
  Serious: Yes (Hospitalization)
  Sender: FDA-Public Use
  Company Number: 2008EU002922

PATIENT
  Age: 13 Year
  Sex: Female

DRUGS (24)
  1. PROGRAF [Suspect]
     Indication: LUNG TRANSPLANT
     Dosage: SEE IMAGE
     Route: 060
     Dates: start: 20081114, end: 20081116
  2. PROGRAF [Suspect]
     Indication: LUNG TRANSPLANT
     Dosage: SEE IMAGE
     Route: 060
     Dates: start: 20081117, end: 20081117
  3. PROGRAF [Suspect]
     Indication: LUNG TRANSPLANT
     Dosage: SEE IMAGE
     Route: 060
     Dates: start: 20081119
  4. CELLCEPT [Suspect]
     Indication: LUNG TRANSPLANT
     Dosage: 750 MG, BID, IV NOS; 500 MG, BID, IV NOS
     Route: 042
     Dates: start: 20081114, end: 20081117
  5. CELLCEPT [Suspect]
     Indication: LUNG TRANSPLANT
     Dosage: 750 MG, BID, IV NOS; 500 MG, BID, IV NOS
     Route: 042
     Dates: start: 20081118
  6. MOPRAL(OMEPRAZOLE) INJECTION [Suspect]
     Dosage: 20 MG, BID, IV NOS; 35 MG,
     Route: 042
     Dates: start: 20081113, end: 20081116
  7. MOPRAL(OMEPRAZOLE) INJECTION [Suspect]
     Dosage: 20 MG, BID, IV NOS; 35 MG,
     Route: 042
     Dates: start: 20081120
  8. ACYCLOVIR [Suspect]
     Dosage: 330 MG, TID,
     Dates: start: 20081113, end: 20081124
  9. VFEND [Suspect]
     Dosage: 320 MG, BID, IV NOS; 300 MG, BID, IV NOS; 200 MG, BID, IV NOS
     Route: 042
     Dates: start: 20081113
  10. VFEND [Suspect]
     Dosage: 320 MG, BID, IV NOS; 300 MG, BID, IV NOS; 200 MG, BID, IV NOS
     Route: 042
     Dates: start: 20081117
  11. METHYLPREDNISOLONE(METHYLPREDNISOLONE SODIUM SUCCINATE) INJECTION [Suspect]
     Dosage: 22 MG, TID, IV NOS; 9 MG, TID, IV NOS
     Route: 042
     Dates: start: 20081114, end: 20081116
  12. METHYLPREDNISOLONE(METHYLPREDNISOLONE SODIUM SUCCINATE) INJECTION [Suspect]
     Dosage: 22 MG, TID, IV NOS; 9 MG, TID, IV NOS
     Route: 042
     Dates: start: 20081117
  13. CORTICOSTEROIDS PER ORAL NOS [Concomitant]
  14. ZELITREX (VALACICLOVIR HYDROCHLORIDE) FORMULATION UNKNOWN [Concomitant]
  15. ACUPAN (NEFOPAM HYDROCHLORIDE) FORMULATION UNKNOWN [Concomitant]
  16. MORPHINE (MORPHINE SULFATE) FORMULATION UNKNOWN [Concomitant]
  17. AMOXICILLIN CLAVULANIC ACID (CLAVULANATE POTASSIUM, AMOXICILLIN TRIHYD [Concomitant]
  18. PARACETAMOL FORMULATION UNKNOWN [Concomitant]
  19. LANTUS (INSULIN GLARGINE) FORMULATION UNKNOWN [Concomitant]
  20. NOVORAPID (INSULIN ASPART) FORMULATION UNKNOWN [Concomitant]
  21. COLIMYCINE (COLISTIN MESILATE SODIUM) AEROSOL [Concomitant]
  22. CELLCEPT [Concomitant]
  23. ACICLOVIR (ACICLOVIR SODIUM) PER ORAL NOS [Concomitant]
  24. KETAMINE (KETAMINE) FORMULATION UNKNOWN [Concomitant]

REACTIONS (15)
  - ALANINE AMINOTRANSFERASE INCREASED [None]
  - ASPARTATE AMINOTRANSFERASE INCREASED [None]
  - BLOOD ALKALINE PHOSPHATASE INCREASED [None]
  - CHOLESTASIS [None]
  - CONVULSION [None]
  - CYTOLYTIC HEPATITIS [None]
  - DRUG ADMINISTRATION ERROR [None]
  - DRUG EFFECT INCREASED [None]
  - DRUG LEVEL FLUCTUATING [None]
  - GAMMA-GLUTAMYLTRANSFERASE INCREASED [None]
  - GRAFT INFECTION [None]
  - HYPERBILIRUBINAEMIA [None]
  - LIVER DISORDER [None]
  - POST PROCEDURAL HAEMORRHAGE [None]
  - SHOCK HAEMORRHAGIC [None]
